FAERS Safety Report 6271361-6 (Version None)
Quarter: 2009Q3

REPORT INFORMATION
  Report Type: 
  Country: None (occurrence: None)
  Receive Date: 20090717
  Receipt Date: 20071127
  Transmission Date: 20100115
  Serious: Yes (Other)
  Sender: FDA-Public Use
  Company Number: US-ASTRAZENECA-2006UW24998

PATIENT
  Age: 19226 Day
  Sex: Female
  Weight: 117.5 kg

DRUGS (34)
  1. SEROQUEL [Suspect]
     Dosage: 10 MG EVERY MORNING, 200 MG EVERY NIGHT
     Route: 048
     Dates: start: 19990406
  2. SEROQUEL [Suspect]
     Route: 048
  3. PREMARIN [Concomitant]
     Indication: POSTMENOPAUSE
     Dosage: 0.625 EVERY DAY
     Dates: start: 19960705
  4. ZIAC [Concomitant]
     Indication: HYPERTENSION
     Dosage: 2.5 EVERY DAY
     Dates: start: 19960705, end: 20060705
  5. LIPITOR [Concomitant]
     Dates: start: 19980602, end: 20060705
  6. PRILOSEC [Concomitant]
     Dates: start: 19980602
  7. DEPAKOTE [Concomitant]
     Dosage: 250 MG EVERY MORNING, 500 EVERY NIGHT
     Dates: start: 19990406
  8. AMBIEN [Concomitant]
     Dates: start: 19990406
  9. ANAFRANIL [Concomitant]
     Dosage: 50 MG ONE EVERY MORNING AND NIGHT
     Dates: start: 19990406
  10. ALLEGRA D 24 HOUR [Concomitant]
     Dosage: ONE EVERY MORNING
     Route: 048
     Dates: start: 19990406
  11. XANAX [Concomitant]
     Indication: ANXIETY
     Dosage: 1 MG HALF TABLET THREE TIMES A DAY AS REQUIRED
     Dates: start: 19990406
  12. XANAX [Concomitant]
     Indication: DEPRESSION
     Dosage: 1 MG HALF TABLET THREE TIMES A DAY AS REQUIRED
     Dates: start: 19990406
  13. LASIX [Concomitant]
     Indication: HYPERTENSION
     Dates: start: 20020406, end: 20060705
  14. WELCHOL [Concomitant]
     Indication: HYPERCHOLESTEROLAEMIA
     Dates: start: 20020406
  15. ATARAX [Concomitant]
     Indication: ANXIETY
     Dates: start: 20020406
  16. ATARAX [Concomitant]
     Indication: DEPRESSION
     Dates: start: 20020406
  17. URSO 250 [Concomitant]
     Indication: LIVER FUNCTION TEST ABNORMAL
     Dates: start: 20020406, end: 20060705
  18. URSO 250 [Concomitant]
     Indication: HEPATIC STEATOSIS
     Dates: start: 20020406, end: 20060705
  19. HYDROCHLOROTHIAZIDE [Concomitant]
     Dates: start: 20020406
  20. DARVOCET [Concomitant]
     Indication: OSTEOARTHRITIS
     Dates: start: 20020406
  21. PREVACID [Concomitant]
     Dates: start: 20020406
  22. GLUMETZA [Concomitant]
     Dates: start: 20070312
  23. VASOTEC [Concomitant]
     Indication: HYPERTENSION
     Dates: start: 20021031, end: 20060705
  24. ZAROXOLYN [Concomitant]
     Indication: HYPERTENSION
     Dates: start: 20021031, end: 20060705
  25. LOPID [Concomitant]
     Dates: start: 20021031, end: 20050105
  26. NEURONTIN [Concomitant]
     Indication: NEUROPATHY PERIPHERAL
     Dates: start: 20050105, end: 20061004
  27. ZANAFLEX [Concomitant]
     Dates: start: 20050105
  28. VICODIN [Concomitant]
     Dates: start: 20050105
  29. WELLBUTRIN [Concomitant]
     Indication: ANXIETY
     Dates: start: 20050105
  30. WELLBUTRIN [Concomitant]
     Indication: DEPRESSION
     Dates: start: 20050105
  31. SONATA [Concomitant]
     Indication: ANXIETY
     Dates: start: 20060110
  32. SONATA [Concomitant]
     Indication: DEPRESSION
     Dates: start: 20060110
  33. GLUCOTROL [Concomitant]
     Indication: DIABETES MELLITUS
     Dates: start: 20060110, end: 20060705
  34. ZETIA [Concomitant]
     Dates: start: 20060705

REACTIONS (6)
  - DIABETES MELLITUS [None]
  - DIABETES MELLITUS INADEQUATE CONTROL [None]
  - DIABETIC NEUROPATHY [None]
  - HYPERGLYCAEMIA [None]
  - NEUROPATHY PERIPHERAL [None]
  - TYPE 2 DIABETES MELLITUS [None]
